FAERS Safety Report 6266340-9 (Version None)
Quarter: 2009Q3

REPORT INFORMATION
  Report Type: 
  Country: None (occurrence: None)
  Receive Date: 20090713
  Receipt Date: 20090701
  Transmission Date: 20100115
  Serious: Yes (Other)
  Sender: FDA-Public Use
  Company Number: US-PFIZER INC-2009195273

PATIENT
  Sex: Female
  Weight: 59.864 kg

DRUGS (2)
  1. LYRICA [Suspect]
     Indication: NEURALGIA
     Dosage: 50 MG, 3X/DAY
     Route: 048
     Dates: start: 20080915, end: 20090501
  2. LYRICA [Suspect]
     Indication: FIBROMYALGIA

REACTIONS (20)
  - ANXIETY [None]
  - ASTHENIA [None]
  - BACK PAIN [None]
  - BLOOD PRESSURE INCREASED [None]
  - BURSITIS [None]
  - CHILLS [None]
  - GLAUCOMA [None]
  - HEADACHE [None]
  - INTERVERTEBRAL DISC DEGENERATION [None]
  - LUMBAR RADICULOPATHY [None]
  - MYALGIA [None]
  - MYOSITIS [None]
  - NIGHT SWEATS [None]
  - PAIN IN EXTREMITY [None]
  - PATELLOFEMORAL PAIN SYNDROME [None]
  - RETINAL DETACHMENT [None]
  - SPINAL OSTEOARTHRITIS [None]
  - SWELLING [None]
  - URINARY INCONTINENCE [None]
  - WEIGHT INCREASED [None]
